FAERS Safety Report 15070276 (Version 2)
Quarter: 2018Q3

REPORT INFORMATION
  Report Type: Spontaneous
  Country: US (occurrence: US)
  Receive Date: 20180626
  Receipt Date: 20180709
  Transmission Date: 20181010
  Serious: Yes (Life-Threatening, Hospitalization, Other)
  Sender: FDA-Public Use
  Company Number: US-COOPERSURGICAL, INC.-US-2018CPS020364

PATIENT

DRUGS (1)
  1. PARAGARD T 380A [Suspect]
     Active Substance: COPPER
     Indication: CONTRACEPTION
     Dosage: UNK
     Route: 015
     Dates: start: 20130605, end: 201708

REACTIONS (24)
  - Chest discomfort [Unknown]
  - Insomnia [Unknown]
  - Discomfort [Unknown]
  - Mechanical ventilation [Unknown]
  - Ectopic pregnancy with contraceptive device [Recovered/Resolved]
  - Maternal exposure during pregnancy [Unknown]
  - Muscle spasms [Unknown]
  - Vomiting [Unknown]
  - Post procedural haemorrhage [Unknown]
  - Fatigue [Unknown]
  - Dyspnoea [Recovering/Resolving]
  - Aphasia [Unknown]
  - Pain [Unknown]
  - Pregnancy with contraceptive device [Recovered/Resolved]
  - Oropharyngeal pain [Unknown]
  - Disability [Recovering/Resolving]
  - Abortion spontaneous [Recovered/Resolved]
  - Fallopian tube obstruction [Recovered/Resolved]
  - Loss of consciousness [Unknown]
  - Drug ineffective [Unknown]
  - Ruptured ectopic pregnancy [Recovering/Resolving]
  - Internal haemorrhage [Unknown]
  - Breast tenderness [Unknown]
  - Anal incontinence [Unknown]

NARRATIVE: CASE EVENT DATE: 2017
